FAERS Safety Report 15547857 (Version 1)
Quarter: 2018Q4

REPORT INFORMATION
  Report Type: Report from Study
  Country: HU (occurrence: HU)
  Receive Date: 20181024
  Receipt Date: 20181024
  Transmission Date: 20190205
  Serious: Yes (Other)
  Sender: FDA-Public Use
  Company Number: HU-BAYER-2018-139293

PATIENT
  Sex: Male
  Weight: 76 kg

DRUGS (1)
  1. NEXAVAR [Suspect]
     Active Substance: SORAFENIB
     Indication: HEPATOCELLULAR CARCINOMA
     Dosage: 400 MG, QD
     Route: 048
     Dates: start: 20180723, end: 20181016

REACTIONS (6)
  - Hypertension [Recovered/Resolved]
  - Decreased appetite [Not Recovered/Not Resolved]
  - Hypertension [Recovered/Resolved]
  - Condition aggravated [None]
  - Fatigue [Not Recovered/Not Resolved]
  - Constipation [Recovered/Resolved]

NARRATIVE: CASE EVENT DATE: 20180723
